FAERS Safety Report 7958303 (Version 3)
Quarter: 2012Q4

REPORT INFORMATION
  Report Type: 
  Country: US (occurrence: US)
  Receive Date: 20110524
  Receipt Date: 20121127
  Transmission Date: 20130627
  Serious: Yes (Death, Other)
  Sender: FDA-Public Use
  Company Number: US-BAYER-2011-044001

PATIENT
  Age: 39 Year
  Sex: Female

DRUGS (11)
  1. YAZ [Suspect]
     Indication: PREMENSTRUAL SYNDROME
     Dosage: UNK
     Dates: start: 20070524, end: 20080429
  2. METFORMIN HCL [Concomitant]
     Dosage: 850 mg, UNK
  3. CODEINE [Concomitant]
     Dosage: 6.25/5
  4. FLUCONAZOLE [Concomitant]
     Dosage: 150 mg, UNK
  5. FLUTICASONE PROPIONATE [Concomitant]
     Dosage: 50 ?g, UNK
  6. PROVENTIL HFA [Concomitant]
     Dosage: 90 ?g, UNK
  7. AMOXICILLIN [Concomitant]
     Dosage: 500 mg, UNK
  8. FENOFIBRATE [Concomitant]
     Dosage: 160 mg, UNK
  9. QVAR [Concomitant]
     Dosage: 80 ?g, UNK
     Dates: start: 20080509
  10. DUONEB [Concomitant]
     Dosage: UNK
     Dates: start: 20080509
  11. FLUOXETINE [Concomitant]

REACTIONS (7)
  - Pulmonary embolism [Fatal]
  - Pulmonary embolism [Fatal]
  - Thrombosis [None]
  - Dyspnoea [Fatal]
  - Chest pain [Fatal]
  - Chest pain [Fatal]
  - Dyspnoea [Fatal]
